FAERS Safety Report 21984189 (Version 1)
Quarter: 2023Q1

REPORT INFORMATION
  Report Type: Spontaneous
  Country: US (occurrence: None)
  Receive Date: 20230212
  Receipt Date: 20230212
  Transmission Date: 20230417
  Serious: Yes (Life-Threatening, Hospitalization, Disabling)
  Sender: FDA-Public Use
  Company Number: None

PATIENT
  Age: 71 Year
  Sex: Male
  Weight: 92 kg

DRUGS (4)
  1. PAXLOVID [Suspect]
     Active Substance: NIRMATRELVIR\RITONAVIR
     Dosage: 300 MG TWICE A DAY ORAL
     Route: 048
     Dates: start: 20230203, end: 20230205
  2. PHENYTOIN [Suspect]
     Active Substance: PHENYTOIN
     Dates: start: 20220303
  3. DEPAKOTE [Suspect]
     Active Substance: DIVALPROEX SODIUM
     Dates: start: 20220305
  4. CARBAMAZEPINE [Suspect]
     Active Substance: CARBAMAZEPINE
     Dosage: 200 MG  AM -400 MG QPM
     Dates: start: 20220321

REACTIONS (11)
  - Liver injury [None]
  - Renal disorder [None]
  - Drug interaction [None]
  - Ataxia [None]
  - Disorientation [None]
  - Acute hepatic failure [None]
  - Coma hepatic [None]
  - Acute kidney injury [None]
  - Hyponatraemia [None]
  - International normalised ratio increased [None]
  - Haemodialysis [None]

NARRATIVE: CASE EVENT DATE: 20230205
